FAERS Safety Report 15268952 (Version 1)
Quarter: 2018Q3

REPORT INFORMATION
  Report Type: Spontaneous
  Country: AU (occurrence: AU)
  Receive Date: 20180813
  Receipt Date: 20180813
  Transmission Date: 20181010
  Serious: Yes (Other)
  Sender: FDA-Public Use
  Company Number: AU-TEVA-2018-AU-940056

PATIENT
  Sex: Female

DRUGS (1)
  1. COPAXONE [Suspect]
     Active Substance: GLATIRAMER ACETATE
     Dosage: 20 MILLIGRAM/MILLILITERS DAILY;
     Route: 058
     Dates: start: 2001

REACTIONS (5)
  - Hyperhidrosis [Unknown]
  - Anaphylactic reaction [Unknown]
  - Injection site rash [Unknown]
  - Dyspnoea [Unknown]
  - Dermatitis allergic [Unknown]
